FAERS Safety Report 10886290 (Version 2)
Quarter: 2015Q1

REPORT INFORMATION
  Report Type: Spontaneous
  Country: US (occurrence: US)
  Receive Date: 20150304
  Receipt Date: 20150314
  Transmission Date: 20150721
  Serious: No
  Sender: FDA-Public Use
  Company Number: US-TEVA-541863USA

PATIENT
  Age: 46 Year
  Sex: Female

DRUGS (1)
  1. ENJUVIA [Suspect]
     Active Substance: ESTROGENS, CONJUGATED SYNTHETIC B
     Route: 065

REACTIONS (7)
  - Insomnia [Unknown]
  - Weight increased [Unknown]
  - Headache [Unknown]
  - Product substitution issue [Unknown]
  - Anxiety [Unknown]
  - Constipation [Unknown]
  - Dizziness [Unknown]
